FAERS Safety Report 8797916 (Version 2)
Quarter: 2012Q4

REPORT INFORMATION
  Report Type: 
  Country: US (occurrence: US)
  Receive Date: 20120920
  Receipt Date: 20121009
  Transmission Date: 20130627
  Serious: Yes (Hospitalization)
  Sender: FDA-Public Use
  Company Number: US-BIOGENIDEC-2012BI038130

PATIENT
  Age: 48 Year
  Sex: Female

DRUGS (1)
  1. TYSABRI [Suspect]
     Indication: MULTIPLE SCLEROSIS
     Route: 042
     Dates: start: 20090319, end: 20120821

REACTIONS (6)
  - Dyspnoea [Unknown]
  - Multiple sclerosis relapse [Recovered/Resolved]
  - General symptom [Unknown]
  - Hypertension [Unknown]
  - Obesity [Unknown]
  - Asthenia [Recovered/Resolved]
